FAERS Safety Report 15767888 (Version 1)
Quarter: 2018Q4

REPORT INFORMATION
  Report Type: Spontaneous
  Country: BR (occurrence: BR)
  Receive Date: 20181227
  Receipt Date: 20181227
  Transmission Date: 20190205
  Serious: Yes (Other)
  Sender: FDA-Public Use
  Company Number: BR-PFIZER INC-2018520241

PATIENT
  Age: 26 Year
  Sex: Female
  Weight: 45 kg

DRUGS (2)
  1. ARISTAB [Concomitant]
     Active Substance: ARIPIPRAZOLE
     Indication: AFFECTIVE DISORDER
     Dosage: 10 MG, 1X/DAY
  2. PRISTIQ EXTENDED-RELEASE [Suspect]
     Active Substance: DESVENLAFAXINE SUCCINATE
     Indication: DEPRESSION
     Dosage: 50 MG, 1X/DAY
     Route: 048
     Dates: start: 20181216, end: 20181217

REACTIONS (2)
  - Visual impairment [Unknown]
  - Vision blurred [Unknown]

NARRATIVE: CASE EVENT DATE: 20181216
